FAERS Safety Report 6426855-7 (Version None)
Quarter: 2009Q4

REPORT INFORMATION
  Report Type: 
  Country: None (occurrence: None)
  Receive Date: 20091103
  Receipt Date: 20091103
  Transmission Date: 20100525
  Serious: No
  Sender: FDA-Public Use
  Company Number: None

PATIENT
  Age: 58 Year
  Sex: Male
  Weight: 91 kg

DRUGS (2)
  1. CISPLATIN [Suspect]
     Dosage: 160 MG ONCE IV
     Route: 042
     Dates: start: 20081026, end: 20081026
  2. FLUOROIRACIL [Suspect]
     Dosage: 2130 MG EVERY DAY IV
     Route: 042
     Dates: start: 20081027, end: 20081031

REACTIONS (3)
  - DEHYDRATION [None]
  - NAUSEA [None]
  - VOMITING [None]
